FAERS Safety Report 4740609-9 (Version None)
Quarter: 2005Q3

REPORT INFORMATION
  Report Type: 
  Country: None (occurrence: None)
  Receive Date: 20050801
  Receipt Date: 20050404
  Transmission Date: 20060218
  Serious: Yes (Other)
  Sender: FDA-Public Use
  Company Number: 2005-04-0214

PATIENT
  Age: 43 Year
  Sex: Female

DRUGS (2)
  1. INFERGEN [Suspect]
     Indication: HEPATITIS C
     Dosage: 15 MCG QD SUBCUTANEOUS
     Route: 058
     Dates: start: 20050322, end: 20050324
  2. RIBAVIRIN [Suspect]
     Indication: HEPATITIS C
     Dosage: 6 CAP QD ORAL
     Route: 048
     Dates: start: 20050322, end: 20050324

REACTIONS (2)
  - DYSPNOEA [None]
  - URTICARIA GENERALISED [None]
